FAERS Safety Report 10237337 (Version 1)
Quarter: 2014Q2

REPORT INFORMATION
  Report Type: Spontaneous
  Country: US (occurrence: US)
  Receive Date: 20140613
  Receipt Date: 20140613
  Transmission Date: 20141212
  Serious: Yes (Other)
  Sender: FDA-Public Use
  Company Number: US-RB-068623-14

PATIENT
  Age: 0 Year
  Sex: Male

DRUGS (3)
  1. SUBOXONE FILM [Suspect]
     Indication: DRUG DEPENDENCE
     Dosage: SUBOXONE FILM
     Route: 064
     Dates: start: 2013, end: 2013
  2. BUPRENORPHINE GENERIC [Suspect]
     Indication: DRUG DEPENDENCE
     Route: 064
     Dates: start: 2013, end: 20140415
  3. NICOTINE [Suspect]
     Indication: NICOTINE DEPENDENCE
     Dosage: 5-10 CIGARETTES DAILY
     Route: 064
     Dates: start: 2013, end: 20140415

REACTIONS (3)
  - Macrosomia [Unknown]
  - Drug withdrawal syndrome neonatal [Recovered/Resolved]
  - Foetal exposure during pregnancy [Recovered/Resolved]
